FAERS Safety Report 7430783-8 (Version None)
Quarter: 2011Q2

REPORT INFORMATION
  Report Type: 
  Country: None (occurrence: None)
  Receive Date: 20110421
  Receipt Date: 20110413
  Transmission Date: 20111010
  Serious: Yes (Hospitalization)
  Sender: FDA-Public Use
  Company Number: JP-ASTRAZENECA-2011SE18549

PATIENT
  Age: 33 Year
  Sex: Female
  Weight: 45 kg

DRUGS (8)
  1. PREDONINE [Concomitant]
     Indication: ASTHMA
     Route: 065
     Dates: start: 20100405
  2. SYMBICORT [Suspect]
     Indication: ASTHMA
     Dosage: 2 DF TWO TIMES A DAY
     Route: 055
     Dates: start: 20100405, end: 20100419
  3. LYSOZYME HYDROCHLORIDE [Concomitant]
     Indication: ASTHMA
     Route: 048
     Dates: start: 20100405
  4. CHLORPHENIRAMINE MALEATE [Concomitant]
     Indication: ASTHMA
     Route: 048
     Dates: start: 20100405
  5. SYMBICORT [Suspect]
     Dosage: 1 DF TWO TIMES A DAY
     Route: 055
     Dates: start: 20110322, end: 20110322
  6. METHYLEPHEDRINE [Concomitant]
     Indication: ASTHMA
     Route: 048
     Dates: start: 20100405
  7. METHYLEPHEDRINE [Concomitant]
     Route: 065
     Dates: start: 20100405
  8. CODEINE [Concomitant]
     Indication: ASTHMA
     Route: 048
     Dates: end: 20100405

REACTIONS (1)
  - BREAST CANCER [None]
